FAERS Safety Report 21723070 (Version 4)
Quarter: 2023Q1

REPORT INFORMATION
  Report Type: Spontaneous
  Country: US (occurrence: US)
  Receive Date: 20221213
  Receipt Date: 20230111
  Transmission Date: 20230418
  Serious: No
  Sender: FDA-Public Use
  Company Number: US-PFIZER INC-202200549998

PATIENT
  Age: 66 Year
  Sex: Male

DRUGS (1)
  1. EUCRISA [Suspect]
     Active Substance: CRISABOROLE
     Dosage: UNK, 2X/DAY (APPLY THIN LAYER TO AFFECTED AREAS TWICE DAILY AS NEEDED FOR FLARES AS DIRECTED)
     Route: 061

REACTIONS (1)
  - Illness [Unknown]
